FAERS Safety Report 11663662 (Version 2)
Quarter: 2015Q4

REPORT INFORMATION
  Report Type: Spontaneous
  Country: US (occurrence: US)
  Receive Date: 20151027
  Receipt Date: 20151028
  Transmission Date: 20160304
  Serious: Yes (Death, Other)
  Sender: FDA-Public Use
  Company Number: PHEH2015US021346

PATIENT
  Age: 75 Year
  Sex: Male

DRUGS (1)
  1. MEKINIST [Suspect]
     Active Substance: TRAMETINIB DIMETHYL SULFOXIDE
     Indication: MALIGNANT MELANOMA
     Dosage: 1 DF, QD
     Route: 048
     Dates: start: 20151001

REACTIONS (3)
  - Sepsis [Unknown]
  - Death [Fatal]
  - Pneumonia [Unknown]

NARRATIVE: CASE EVENT DATE: 20151014
